FAERS Safety Report 9240308 (Version 1)
Quarter: 2013Q2

REPORT INFORMATION
  Report Type: Spontaneous
  Country: US (occurrence: None)
  Receive Date: 20130417
  Receipt Date: 20130417
  Transmission Date: 20140414
  Serious: Yes (Other)
  Sender: FDA-Public Use
  Company Number: 2013HINLIT0080

PATIENT
  Age: 22 Year
  Sex: Male

DRUGS (1)
  1. INDOMETHACIN [Suspect]

REACTIONS (1)
  - Leukocytoclastic vasculitis [None]
